FAERS Safety Report 16183464 (Version 1)
Quarter: 2019Q2

REPORT INFORMATION
  Report Type: Spontaneous
  Country: DE (occurrence: DE)
  Receive Date: 20190411
  Receipt Date: 20190411
  Transmission Date: 20190711
  Serious: Yes (Other)
  Sender: FDA-Public Use
  Company Number: DE-HIKMA PHARMACEUTICALS USA INC.-DE-H14001-19-02112

PATIENT
  Sex: Female

DRUGS (1)
  1. PARACEFAN [Suspect]
     Active Substance: CLONIDINE
     Indication: PRODUCT USED FOR UNKNOWN INDICATION
     Route: 065

REACTIONS (8)
  - Drug abuse [Unknown]
  - Arthralgia [Unknown]
  - Asthenia [Unknown]
  - Gait disturbance [Unknown]
  - Cardiac disorder [Unknown]
  - Hypotension [Unknown]
  - Loss of consciousness [Unknown]
  - Nausea [Unknown]
